FAERS Safety Report 17861565 (Version 4)
Quarter: 2020Q3

REPORT INFORMATION
  Report Type: Spontaneous
  Country: AU (occurrence: AU)
  Receive Date: 20200604
  Receipt Date: 20200701
  Transmission Date: 20201103
  Serious: Yes (Other)
  Sender: FDA-Public Use
  Company Number: AU-PFIZER INC-2020215448

PATIENT
  Age: 46 Year
  Sex: Male
  Weight: 138 kg

DRUGS (21)
  1. RISPERIDONE. [Concomitant]
     Active Substance: RISPERIDONE
     Indication: SCHIZOPHRENIA
     Dosage: 4 MG, NOCTE
     Route: 048
  2. DIAMICRON [Concomitant]
     Active Substance: GLICLAZIDE
     Dosage: 60 MG, 2X/DAY
  3. JANUMET [Concomitant]
     Active Substance: METFORMIN HYDROCHLORIDE\SITAGLIPTIN PHOSPHATE
     Dosage: 50/1000MG 2X/DAY
  4. TOPROL XL [Concomitant]
     Active Substance: METOPROLOL SUCCINATE
     Dosage: 47.5 MG, 2X/DAY
  5. CLOZAPINE. [Suspect]
     Active Substance: CLOZAPINE
     Dosage: UNK
     Dates: start: 19961221
  6. EFEXOR XR [Suspect]
     Active Substance: VENLAFAXINE HYDROCHLORIDE
     Dosage: 150 MG, DAILY
  7. MINAX [METOPROLOL SUCCINATE] [Concomitant]
     Dosage: UNK
  8. PERINDOPRIL [Concomitant]
     Active Substance: PERINDOPRIL
     Dosage: 5 MG, DAILY
  9. CLOPINE [Suspect]
     Active Substance: CLOZAPINE
     Indication: SCHIZOPHRENIA
     Dosage: UNK
     Dates: start: 20080429
  10. RIXADONE [Concomitant]
     Active Substance: RISPERIDONE
     Dosage: UNK
  11. VENLAFAXIN [Concomitant]
     Active Substance: VENLAFAXINE HYDROCHLORIDE
     Indication: DEPRESSION
     Dosage: 150 MG, MANE
     Route: 048
  12. CLOPINE [Suspect]
     Active Substance: CLOZAPINE
     Dosage: 425 MG, DAILY (425 MG NOCTE)
     Route: 048
  13. PERINDOPRIL [Concomitant]
     Active Substance: PERINDOPRIL
     Dosage: 4 MG, DAILY
  14. SITAGLIPTINE [Concomitant]
     Active Substance: SITAGLIPTIN
     Dosage: UNK
  15. EFEXOR XR [Suspect]
     Active Substance: VENLAFAXINE HYDROCHLORIDE
     Dosage: 225 MG (150 MG AND 75 MG), DAILY
  16. ESOMEPRAZOLE. [Concomitant]
     Active Substance: ESOMEPRAZOLE MAGNESIUM
     Dosage: 20 MG, DAILY
  17. FORXIGA [Concomitant]
     Active Substance: DAPAGLIFLOZIN
     Dosage: 10 MG, DAILY
  18. METFORMIN [Concomitant]
     Active Substance: METFORMIN HYDROCHLORIDE
     Dosage: UNK
  19. ATOZET [Concomitant]
     Active Substance: ATORVASTATIN CALCIUM\EZETIMIBE
     Dosage: 10/40 MG DAILY
  20. CLOPINE [Suspect]
     Active Substance: CLOZAPINE
     Dosage: 450 MG, 1X/DAY (NOCTE)
  21. NEXIUM I.V. [Concomitant]
     Active Substance: ESOMEPRAZOLE SODIUM
     Dosage: 20 MG, DAILY

REACTIONS (12)
  - Vitamin D decreased [Unknown]
  - Palpitations [Unknown]
  - Mental disorder [Unknown]
  - Blood glucose increased [Unknown]
  - Cardiac disorder [Unknown]
  - Weight decreased [Unknown]
  - Chest pain [Not Recovered/Not Resolved]
  - QRS axis abnormal [Unknown]
  - Bundle branch block right [Unknown]
  - Electrocardiogram QT prolonged [Not Recovered/Not Resolved]
  - Bundle branch block left [Unknown]
  - Sinus tachycardia [Unknown]

NARRATIVE: CASE EVENT DATE: 2019
